FAERS Safety Report 11558086 (Version 3)
Quarter: 2015Q4

REPORT INFORMATION
  Report Type: Report from Study
  Country: JP (occurrence: JP)
  Receive Date: 20150928
  Receipt Date: 20151111
  Transmission Date: 20160304
  Serious: Yes (Life-Threatening, Other)
  Sender: FDA-Public Use
  Company Number: JP-TAKEDA-2015TJP018096

PATIENT
  Age: 55 Year
  Sex: Male
  Weight: 55.1 kg

DRUGS (15)
  1. PLACEBO [Suspect]
     Active Substance: UNSPECIFIED INGREDIENT
     Indication: CROHN^S DISEASE
     Dosage: UNK
     Route: 041
     Dates: start: 20140718, end: 20140829
  2. CIPROXAN                           /00697202/ [Concomitant]
     Active Substance: CIPROFLOXACIN
     Indication: CROHN^S DISEASE
     Dosage: 300 MG, BID
     Route: 048
  3. INTRALIPOS [Concomitant]
     Active Substance: SOYBEAN OIL
     Indication: CROHN^S DISEASE
     Dosage: 100 ML, 3/WEEK
     Route: 041
     Dates: start: 20150327
  4. MLN0002 [Suspect]
     Active Substance: VEDOLIZUMAB
     Indication: CROHN^S DISEASE
     Dosage: 300 MG, UNK
     Route: 041
     Dates: start: 20140926
  5. LOPEMIN                            /00384302/ [Concomitant]
     Active Substance: LOPERAMIDE HYDROCHLORIDE
     Indication: CROHN^S DISEASE
     Dosage: 1 DF, BID
     Route: 048
  6. RESTAMIN                           /00000401/ [Concomitant]
     Indication: PRURITUS
     Dosage: UNK
     Route: 062
  7. SCOPOLIA EXTRACT [Concomitant]
     Indication: CROHN^S DISEASE
     Dosage: 10 MG, TID
     Route: 048
  8. WARKMIN [Concomitant]
     Active Substance: ALFACALCIDOL
     Indication: HYPOTHYROIDISM
     Dosage: 2 DF, QD
     Route: 048
     Dates: start: 201109
  9. PENTASA [Concomitant]
     Active Substance: MESALAMINE
     Indication: CROHN^S DISEASE
     Dosage: 1000 MG, TID
     Route: 048
  10. FERROMIA [Concomitant]
     Active Substance: FERROUS CITRATE
     Indication: IRON DEFICIENCY ANAEMIA
     Dosage: 50 MG, BID
     Route: 048
  11. ELENTAL [Concomitant]
     Active Substance: AMINO ACIDS\CARBOHYDRATES\MINERALS\SOYBEAN OIL\VITAMINS
     Indication: CROHN^S DISEASE
     Dosage: 240 G, QD
     Route: 050
     Dates: start: 20150227
  12. MOHRUS [Concomitant]
     Active Substance: KETOPROFEN
     Indication: BACK PAIN
     Dosage: UNK
     Route: 062
  13. BIOFERMIN                          /01617201/ [Concomitant]
     Active Substance: BACILLUS SUBTILIS\LACTOBACILLUS ACIDOPHILUS\STREPTOCOCCUS FAECAIS
     Indication: CROHN^S DISEASE
     Dosage: 1 G, TID
     Route: 048
  14. PROCTOSEDYL [Concomitant]
     Active Substance: DIBUCAINE HYDROCHLORIDE\HYDROCORTISONE
     Indication: ANAL FISTULA
     Dosage: UNK
     Route: 062
  15. THYRADIN-S [Concomitant]
     Active Substance: LEVOTHYROXINE
     Indication: HYPOTHYROIDISM
     Dosage: 175 ?G, QD
     Route: 048
     Dates: start: 201109

REACTIONS (1)
  - Septic shock [Recovered/Resolved]

NARRATIVE: CASE EVENT DATE: 20150918
